FAERS Safety Report 7465199-1 (Version None)
Quarter: 2011Q2

REPORT INFORMATION
  Report Type: 
  Country: None (occurrence: None)
  Receive Date: 20110509
  Receipt Date: 20110425
  Transmission Date: 20111010
  Serious: Yes (Other)
  Sender: FDA-Public Use
  Company Number: PHHY2011US23999

PATIENT
  Sex: Female
  Weight: 87.075 kg

DRUGS (2)
  1. EXJADE [Suspect]
     Indication: IRON METABOLISM DISORDER
     Dosage: 1750 MG, UNK
     Route: 048
     Dates: start: 20100903
  2. EXJADE [Suspect]
     Dosage: UNK
     Route: 048

REACTIONS (11)
  - RECTAL TENESMUS [None]
  - GROIN PAIN [None]
  - BLOOD PRESSURE DECREASED [None]
  - DYSURIA [None]
  - ALANINE AMINOTRANSFERASE DECREASED [None]
  - DYSPNOEA EXERTIONAL [None]
  - ANAEMIA [None]
  - MALAISE [None]
  - NAUSEA [None]
  - FATIGUE [None]
  - ABDOMINAL PAIN [None]
